FAERS Safety Report 6467511-9 (Version None)
Quarter: 2009Q4

REPORT INFORMATION
  Report Type: 
  Country: None (occurrence: None)
  Receive Date: 20091202
  Receipt Date: 20091125
  Transmission Date: 20100525
  Serious: Yes (Other)
  Sender: FDA-Public Use
  Company Number: CHPA2009US22237

PATIENT
  Age: 64 Year
  Sex: Female
  Weight: 101.13 kg

DRUGS (5)
  1. VOLTAREN [Suspect]
     Indication: OSTEOARTHRITIS
     Dosage: 4 G, ONCE OR TWICE A DAY
     Route: 061
     Dates: start: 20090701
  2. VOLTAREN [Suspect]
     Dosage: 2 G, QD
     Route: 061
     Dates: start: 20090701
  3. FOLIC ACID [Concomitant]
     Route: 048
  4. LITHIUM [Concomitant]
     Indication: SEASONAL AFFECTIVE DISORDER
     Route: 048
  5. ZOLOFT [Concomitant]
     Indication: SEASONAL AFFECTIVE DISORDER
     Route: 048

REACTIONS (5)
  - ABASIA [None]
  - ARTHRALGIA [None]
  - ARTHRITIS [None]
  - FALL [None]
  - MUSCULAR WEAKNESS [None]
